FAERS Safety Report 5274267-4 (Version None)
Quarter: 2007Q1

REPORT INFORMATION
  Report Type: 
  Country: None (occurrence: None)
  Receive Date: 20070323
  Receipt Date: 20070312
  Transmission Date: 20070707
  Serious: Yes (Other)
  Sender: FDA-Public Use
  Company Number: US-JNJFOC-20070103797

PATIENT
  Sex: Female
  Weight: 102.97 kg

DRUGS (8)
  1. TOPAMAX [Suspect]
     Indication: HEADACHE
     Route: 048
  2. TOPAMAX [Suspect]
     Indication: BENIGN INTRACRANIAL HYPERTENSION
     Route: 048
  3. REBIF [Concomitant]
     Indication: MULTIPLE SCLEROSIS
  4. BACLOFEN [Concomitant]
     Indication: MUSCLE SPASMS
  5. IBUPROFEN [Concomitant]
     Indication: PAIN
  6. AMBIEN [Concomitant]
     Indication: INSOMNIA
  7. LEXAPRO [Concomitant]
     Indication: DEPRESSION
  8. DIAMOX [Concomitant]
     Indication: BENIGN INTRACRANIAL HYPERTENSION

REACTIONS (8)
  - CARDIAC HYPERTROPHY [None]
  - DIARRHOEA [None]
  - ELECTROCARDIOGRAM QT PROLONGED [None]
  - HEART RATE IRREGULAR [None]
  - HYPOKALAEMIA [None]
  - METABOLIC ACIDOSIS [None]
  - POLYURIA [None]
  - WEIGHT DECREASED [None]
